FAERS Safety Report 9168340 (Version 1)
Quarter: 2013Q1

REPORT INFORMATION
  Report Type: Spontaneous
  Country: US (occurrence: None)
  Receive Date: 20130313
  Receipt Date: 20130313
  Transmission Date: 20140127
  Serious: Yes (Life-Threatening, Hospitalization, Disabling)
  Sender: FDA-Public Use
  Company Number: None

PATIENT
  Age: 47 Year
  Sex: Female
  Weight: 71 kg

DRUGS (1)
  1. DOCETAXEL 10MG/ML HOSPIRA [Suspect]
     Indication: BREAST CANCER
     Route: 042
     Dates: start: 20121005

REACTIONS (7)
  - Abdominal pain [None]
  - Neutropenia [None]
  - Colitis [None]
  - Septic shock [None]
  - Caecitis [None]
  - Fistula [None]
  - General physical health deterioration [None]
